FAERS Safety Report 5993041-4 (Version None)
Quarter: 2008Q4

REPORT INFORMATION
  Report Type: 
  Country: None (occurrence: None)
  Receive Date: 20081212
  Receipt Date: 20081208
  Transmission Date: 20090506
  Serious: Yes (Other)
  Sender: FDA-Public Use
  Company Number: US-BRISTOL-MYERS SQUIBB COMPANY-14436174

PATIENT
  Age: 35 Year
  Sex: Male

DRUGS (11)
  1. TRIAMCINOLONE ACETONIDE [Suspect]
     Indication: BACK PAIN
     Dosage: 60 MG AND 80 MG 1 WEEK APART.
  2. LOPINAVIR AND RITONAVIR [Interacting]
     Dosage: LOPINAVIR + ROTONAVIR 400 MG/ 100 MG.
  3. EMTRICITABINE [Interacting]
  4. TENOFOVIR [Interacting]
  5. TRAZODONE HCL [Concomitant]
  6. RABEPRAZOLE SODIUM [Concomitant]
  7. OXYCODONE HCL [Concomitant]
  8. FEXOFENADINE HCL [Concomitant]
  9. GABAPENTIN [Concomitant]
  10. OXYCODONE HCL AND ACETAMINOPHEN [Concomitant]
  11. CYCLOBENZAPRINE HCL [Concomitant]

REACTIONS (2)
  - CUSHING'S SYNDROME [None]
  - DRUG INTERACTION [None]
